FAERS Safety Report 24378235 (Version 1)
Quarter: 2024Q3

REPORT INFORMATION
  Report Type: Spontaneous
  Country: US (occurrence: US)
  Receive Date: 20240930
  Receipt Date: 20240930
  Transmission Date: 20241016
  Serious: No
  Sender: PRASCO
  Company Number: US-Prasco Laboratories-PRAS20241165

PATIENT
  Age: 72 Year
  Sex: Female

DRUGS (3)
  1. ESTRADIOL [Suspect]
     Active Substance: ESTRADIOL
     Indication: Urinary tract infection
     Dosage: 1 GRAM
     Route: 067
     Dates: start: 2024
  2. ESTRADIOL [Suspect]
     Active Substance: ESTRADIOL
     Dosage: 1 GRAM
     Route: 067
     Dates: start: 202403, end: 2024
  3. methenamine HTP [Concomitant]
     Indication: Prophylaxis urinary tract infection
     Dosage: UNKNOWN
     Route: 065

REACTIONS (3)
  - Breast mass [Not Recovered/Not Resolved]
  - Heterogeneously dense breasts [Not Recovered/Not Resolved]
  - Off label use [None]

NARRATIVE: CASE EVENT DATE: 20240101
